FAERS Safety Report 11467513 (Version 13)
Quarter: 2016Q2

REPORT INFORMATION
  Report Type: Report from Study
  Country: BR (occurrence: BR)
  Receive Date: 20150908
  Receipt Date: 20160512
  Transmission Date: 20160815
  Serious: Yes (Hospitalization, Other)
  Sender: FDA-Public Use
  Company Number: PHHY2015BR107885

PATIENT
  Age: 59 Year
  Sex: Male
  Weight: 100 kg

DRUGS (3)
  1. CABERGOLINE. [Concomitant]
     Active Substance: CABERGOLINE
     Indication: ACROMEGALY
     Route: 065
  2. SANDOSTATIN LAR DEPOT [Suspect]
     Active Substance: OCTREOTIDE ACETATE
     Indication: ACROMEGALY
     Dosage: 1 DF, QMO
     Route: 030
     Dates: start: 2010, end: 201512
  3. CAPTOPRIL. [Concomitant]
     Active Substance: CAPTOPRIL
     Indication: HYPERTENSION
     Dosage: 3 DF, QD
     Route: 048
     Dates: start: 1989

REACTIONS (23)
  - Spinal pain [Recovering/Resolving]
  - Musculoskeletal pain [Unknown]
  - Panic reaction [Unknown]
  - Injection site pain [Unknown]
  - Coma [Unknown]
  - Hypokinesia [Unknown]
  - Malaise [Unknown]
  - Crying [Unknown]
  - Weight decreased [Unknown]
  - Arthropathy [Unknown]
  - Abasia [Recovering/Resolving]
  - Myalgia [Recovering/Resolving]
  - Decreased interest [Unknown]
  - Intervertebral disc protrusion [Recovering/Resolving]
  - Pain [Unknown]
  - Fracture [Unknown]
  - Asthenia [Unknown]
  - Fall [Recovered/Resolved]
  - Pain in extremity [Unknown]
  - Fracture pain [Unknown]
  - Diabetes mellitus [Unknown]
  - Procedural pain [Unknown]
  - Peripheral swelling [Unknown]

NARRATIVE: CASE EVENT DATE: 201509
